FAERS Safety Report 8605722-4 (Version None)
Quarter: 2012Q3

REPORT INFORMATION
  Report Type: 
  Country: None (occurrence: None)
  Receive Date: 20120820
  Receipt Date: 20120813
  Transmission Date: 20120928
  Serious: Yes (Other)
  Sender: FDA-Public Use
  Company Number: US-JNJFOC-20120611751

PATIENT
  Sex: Male
  Weight: 75.75 kg

DRUGS (7)
  1. REMICADE [Suspect]
     Indication: COLITIS ULCERATIVE
     Route: 042
     Dates: start: 20120601, end: 20120601
  2. REMICADE [Suspect]
     Indication: SPONDYLOARTHROPATHY
     Route: 042
     Dates: start: 20120601, end: 20120601
  3. DEXILANT [Concomitant]
     Indication: GASTROOESOPHAGEAL REFLUX DISEASE
     Route: 048
  4. ZOLOFT [Concomitant]
     Indication: HEADACHE
     Route: 065
  5. REMICADE [Suspect]
     Route: 042
     Dates: start: 20120521, end: 20120501
  6. SINGULAIR [Concomitant]
     Indication: ANGIOEDEMA
     Route: 048
  7. REMICADE [Suspect]
     Route: 042
     Dates: start: 20120521, end: 20120501

REACTIONS (6)
  - INSOMNIA [None]
  - NIGHT SWEATS [None]
  - ASTHENIA [None]
  - CHEST DISCOMFORT [None]
  - BLOOD PRESSURE INCREASED [None]
  - FATIGUE [None]
